FAERS Safety Report 25712394 (Version 1)
Quarter: 2025Q3

REPORT INFORMATION
  Report Type: Spontaneous
  Country: CH (occurrence: CH)
  Receive Date: 20250821
  Receipt Date: 20250821
  Transmission Date: 20251021
  Serious: Yes (Death, Other)
  Sender: SANDOZ
  Company Number: CH-002147023-PHHY2015CH093712

PATIENT
  Age: 27 Year
  Sex: Female
  Weight: 35 kg

DRUGS (9)
  1. CYCLOSPORINE [Suspect]
     Active Substance: CYCLOSPORINE
     Indication: Lung transplant
     Route: 065
  2. CYCLOSPORINE [Suspect]
     Active Substance: CYCLOSPORINE
     Indication: Immunosuppressant drug therapy
  3. CYCLOSPORINE [Suspect]
     Active Substance: CYCLOSPORINE
     Indication: Immunosuppression
  4. MYCOPHENOLATE MOFETIL [Suspect]
     Active Substance: MYCOPHENOLATE MOFETIL
     Indication: Lung transplant
     Dosage: 1000 MG, BID
     Route: 065
  5. MYCOPHENOLATE MOFETIL [Suspect]
     Active Substance: MYCOPHENOLATE MOFETIL
     Indication: Immunosuppressant drug therapy
  6. MYCOPHENOLATE MOFETIL [Suspect]
     Active Substance: MYCOPHENOLATE MOFETIL
     Indication: Immunosuppression
  7. PREDNISONE [Suspect]
     Active Substance: PREDNISONE
     Indication: Lung transplant
     Dosage: MAINTENANCE DOSE 0.1 MG/KG/DAY, BODY WEIGHT 35 KG
     Route: 023
  8. PREDNISONE [Suspect]
     Active Substance: PREDNISONE
     Indication: Immunosuppressant drug therapy
  9. PREDNISONE [Suspect]
     Active Substance: PREDNISONE
     Indication: Immunosuppression

REACTIONS (15)
  - Pulmonary embolism [Fatal]
  - Right ventricular failure [Fatal]
  - Constipation [Unknown]
  - Adenocarcinoma gastric [Unknown]
  - Gastritis [Unknown]
  - Fibrosis [Unknown]
  - Abdominal pain upper [Unknown]
  - Hilar lymphadenopathy [Unknown]
  - Retroperitoneal lymphadenopathy [Unknown]
  - Hypercoagulation [Unknown]
  - Venous thrombosis [Unknown]
  - Metastases to lymph nodes [Unknown]
  - Adenocarcinoma gastric [Unknown]
  - Hepatic lesion [Unknown]
  - Immunosuppressant drug level decreased [Unknown]

NARRATIVE: CASE EVENT DATE: 20130101
